FAERS Safety Report 9959984 (Version 2)
Quarter: 2014Q1

REPORT INFORMATION
  Report Type: Report from Study
  Country: US (occurrence: US)
  Receive Date: 20140305
  Receipt Date: 20140305
  Transmission Date: 20141002
  Serious: Yes (Hospitalization, Other)
  Sender: FDA-Public Use
  Company Number: US-ABBVIE-12P-163-0916365-00

PATIENT
  Age: 42 Year
  Sex: Male

DRUGS (6)
  1. HUMIRA 40 MG/0.8 ML PEN [Suspect]
     Indication: PSORIASIS
     Dates: start: 20110606, end: 20120206
  2. UNKNOWN CREAM FOR PSORIASIS [Concomitant]
     Indication: PSORIASIS
  3. NORCO [Concomitant]
     Indication: ARTHRALGIA
     Dosage: 3 IN 1 DAY AS NEEDED
  4. PRILOSEC [Concomitant]
     Indication: DYSPEPSIA
     Dosage: OVER THE COUNTER
  5. VISTARIL [Concomitant]
     Indication: HYPERSENSITIVITY
  6. XANAX [Concomitant]
     Indication: PRODUCT USED FOR UNKNOWN INDICATION

REACTIONS (10)
  - Diverticulitis [Not Recovered/Not Resolved]
  - Dyspepsia [Unknown]
  - Abdominal pain lower [Not Recovered/Not Resolved]
  - Psoriasis [Not Recovered/Not Resolved]
  - Arthralgia [Not Recovered/Not Resolved]
  - Anxiety [Unknown]
  - Weight increased [Not Recovered/Not Resolved]
  - Hypertension [Not Recovered/Not Resolved]
  - Oedema [Not Recovered/Not Resolved]
  - Polyp [Unknown]
